FAERS Safety Report 5394113-8 (Version None)
Quarter: 2007Q3

REPORT INFORMATION
  Report Type: 
  Country: None (occurrence: None)
  Receive Date: 20070720
  Receipt Date: 20070720
  Transmission Date: 20080115
  Serious: Yes (Hospitalization)
  Sender: FDA-Public Use
  Company Number: None

PATIENT
  Sex: Male
  Weight: 94 kg

DRUGS (6)
  1. TEMOZOLOMIDE [Suspect]
     Dosage: 775 MG
  2. COTRIM [Concomitant]
  3. DEXAMETHASONE 0.5MG TAB [Concomitant]
  4. DOMPERIDONE [Concomitant]
  5. OMEPRAZOLE [Concomitant]
  6. ACETAMINOPHEN [Concomitant]

REACTIONS (3)
  - HAEMORRHAGE [None]
  - HEADACHE [None]
  - NAUSEA [None]
